FAERS Safety Report 9932579 (Version 1)
Quarter: 2020Q3

REPORT INFORMATION
  Report Type: Report from Study
  Country: ES (occurrence: ES)
  Receive Date: 20140228
  Receipt Date: 20140228
  Transmission Date: 20201104
  Serious: Yes (Hospitalization)
  Sender: FDA-Public Use
  Company Number: PHHY2014ES020876

PATIENT
  Age: 42 Year
  Sex: Female

DRUGS (13)
  1. OXALIPLATIN. [Suspect]
     Active Substance: OXALIPLATIN
     Indication: GASTROOESOPHAGEAL CANCER
     Dosage: 142.5 MG, QW2
     Route: 042
     Dates: start: 20131112
  2. LEVOFOLINIC ACID [Suspect]
     Active Substance: LEVOLEUCOVORIN
     Indication: GASTROOESOPHAGEAL CANCER
     Dosage: 668 MG, QW2
     Route: 042
     Dates: start: 20131112
  3. 5?FLUOROURACIL [Suspect]
     Active Substance: FLUOROURACIL
     Indication: GASTROOESOPHAGEAL CANCER
     Dosage: 670 MG, QW2
     Route: 040
     Dates: start: 20130912
  4. APREPITANT. [Concomitant]
     Active Substance: APREPITANT
     Indication: NAUSEA
     Dosage: 285 MG, UNK
     Route: 048
     Dates: start: 20130912
  5. 5?FLUOROURACIL [Suspect]
     Active Substance: FLUOROURACIL
     Indication: GASTROOESOPHAGEAL CANCER
     Dosage: 4100 MG, QW2
     Route: 041
     Dates: start: 20131112
  6. LIOTHYRONIN [Concomitant]
     Indication: HYPOTHYROIDISM
     Route: 048
  7. LEVOTHYROXINE. [Concomitant]
     Active Substance: LEVOTHYROXINE
     Route: 048
  8. DEXAMETHASONE. [Concomitant]
     Active Substance: DEXAMETHASONE
     Indication: NAUSEA
     Dosage: 12 MG, UNK
     Route: 042
     Dates: start: 20130912
  9. CIPROFLOXACIN. [Concomitant]
     Active Substance: CIPROFLOXACIN
     Indication: GASTROENTERITIS
     Dosage: 500 MG, UNK
     Route: 042
     Dates: start: 20131213, end: 20131218
  10. METRONIDAZOL [Concomitant]
     Active Substance: METRONIDAZOLE
     Indication: GASTROENTERITIS
     Dosage: 500 MG, UNK
     Route: 042
     Dates: start: 20131213, end: 20131219
  11. ONARTUZUMAB. [Suspect]
     Active Substance: ONARTUZUMAB
     Indication: GASTROOESOPHAGEAL CANCER
  12. GRANISETRON [Concomitant]
     Active Substance: GRANISETRON
     Indication: CHEMOTHERAPY
     Dosage: 05 MG, UNK
     Route: 042
     Dates: start: 20130912
  13. METRONIDAZOL [Concomitant]
     Active Substance: METRONIDAZOLE
     Indication: DIARRHOEA
     Dosage: 500 MG, UNK
     Route: 042
     Dates: start: 20131227

REACTIONS (2)
  - Pyrexia [Recovered/Resolved]
  - Febrile neutropenia [Not Recovered/Not Resolved]

NARRATIVE: CASE EVENT DATE: 20131117
